FAERS Safety Report 8989249 (Version 1)
Quarter: 2012Q4

REPORT INFORMATION
  Report Type: 
  Country: IR (occurrence: IR)
  Receive Date: 20121227
  Receipt Date: 20121227
  Transmission Date: 20130627
  Serious: Yes (Death)
  Sender: FDA-Public Use
  Company Number: IR-MYLANLABS-2012S1026004

PATIENT
  Age: 26 Year
  Sex: Male

DRUGS (5)
  1. VANCOMYCIN [Suspect]
     Indication: STAPHYLOCOCCAL INFECTION
     Route: 065
  2. HYDROCORTISONE [Concomitant]
     Indication: INFLAMMATION
     Route: 065
  3. CIPROFLOXACIN [Concomitant]
     Indication: PERITONITIS
     Route: 065
  4. METRONIDAZOLE [Concomitant]
     Indication: PERITONITIS
     Route: 065
  5. KETOCONAZOLE [Concomitant]
     Indication: PERITONITIS
     Route: 065

REACTIONS (1)
  - Drug resistance [Fatal]
